FAERS Safety Report 4397165-7 (Version None)
Quarter: 2004Q3

REPORT INFORMATION
  Report Type: 
  Country: None (occurrence: None)
  Receive Date: 20040714
  Receipt Date: 20040608
  Transmission Date: 20050211
  Serious: Yes (Other)
  Sender: FDA-Public Use
  Company Number: FI-ROCHE-370809

PATIENT
  Age: 80 Year
  Sex: Female
  Weight: 65 kg

DRUGS (6)
  1. XELODA [Suspect]
     Route: 048
     Dates: start: 20030715
  2. NITROFUR-C [Concomitant]
     Dates: start: 20040615
  3. KEFEXIN [Concomitant]
     Dates: start: 20040615
  4. HYDROCORTISONE [Concomitant]
     Indication: POLYMYALGIA RHEUMATICA
     Route: 048
     Dates: start: 19840615
  5. TRAMAL [Concomitant]
     Indication: PAIN
     Route: 048
  6. ARTIFICIAL SALIVA [Concomitant]
     Indication: DRY MOUTH

REACTIONS (2)
  - CONDITION AGGRAVATED [None]
  - DENTAL CARIES [None]
